APPROVED DRUG PRODUCT: CYTOXAN (LYOPHILIZED)
Active Ingredient: CYCLOPHOSPHAMIDE
Strength: 2GM/VIAL **Federal Register determination that product was not discontinued or withdrawn for safety or effectiveness reasons**
Dosage Form/Route: INJECTABLE;INJECTION
Application: N012142 | Product #009
Applicant: BAXTER HEALTHCARE CORP
Approved: Dec 10, 1985 | RLD: Yes | RS: No | Type: DISCN